FAERS Safety Report 5803977-2 (Version None)
Quarter: 2008Q3

REPORT INFORMATION
  Report Type: 
  Country: None (occurrence: None)
  Receive Date: 20080703
  Receipt Date: 20080620
  Transmission Date: 20090109
  Serious: Yes (Hospitalization)
  Sender: FDA-Public Use
  Company Number: 2008AL007418

PATIENT
  Sex: Female

DRUGS (1)
  1. DIGOXIN [Suspect]
     Dates: start: 20071101

REACTIONS (2)
  - ILL-DEFINED DISORDER [None]
  - SURGERY [None]
